FAERS Safety Report 14613369 (Version 3)
Quarter: 2020Q1

REPORT INFORMATION
  Report Type: Spontaneous
  Country: US (occurrence: US)
  Receive Date: 20180308
  Receipt Date: 20200204
  Transmission Date: 20200409
  Serious: Yes (Death)
  Sender: FDA-Public Use
  Company Number: US-JNJFOC-20180234807

PATIENT
  Age: 59 Year
  Sex: Female

DRUGS (2)
  1. XARELTO [Suspect]
     Active Substance: RIVAROXABAN
     Indication: PULMONARY EMBOLISM
     Route: 048
     Dates: start: 20160301, end: 20160402
  2. ZAROXOLYN [Suspect]
     Active Substance: METOLAZONE

REACTIONS (4)
  - Congestive cardiomyopathy [Fatal]
  - Myocardial ischaemia [Fatal]
  - Gastrointestinal haemorrhage [Fatal]
  - Cerebrovascular disorder [Fatal]

NARRATIVE: CASE EVENT DATE: 20160402
